FAERS Safety Report 24808596 (Version 2)
Quarter: 2025Q1

REPORT INFORMATION
  Report Type: Spontaneous
  Country: US (occurrence: US)
  Receive Date: 20250106
  Receipt Date: 20250324
  Transmission Date: 20250409
  Serious: No
  Sender: ALEXION PHARMACEUTICALS
  Company Number: US-ASTRAZENECA-202412USA024522US

PATIENT

DRUGS (13)
  1. ULTOMIRIS [Suspect]
     Active Substance: RAVULIZUMAB-CWVZ
     Route: 065
  2. SOLIRIS [Suspect]
     Active Substance: ECULIZUMAB
     Route: 065
  3. TEGRETOL [Concomitant]
     Active Substance: CARBAMAZEPINE
     Route: 065
  4. ZEPOSIA [Concomitant]
     Active Substance: OZANIMOD HYDROCHLORIDE
     Route: 065
  5. AMITRIPTYLINE [Concomitant]
     Active Substance: AMITRIPTYLINE
     Route: 065
  6. TYSABRI [Concomitant]
     Active Substance: NATALIZUMAB
     Route: 065
  7. BRIUMVI [Concomitant]
     Active Substance: UBLITUXIMAB-XIIY
     Route: 065
  8. LEMTRADA [Concomitant]
     Active Substance: ALEMTUZUMAB
     Route: 065
  9. VYVGART [Concomitant]
     Active Substance: EFGARTIGIMOD ALFA-FCAB
     Route: 065
  10. UPLIZNA [Concomitant]
     Active Substance: INEBILIZUMAB-CDON
     Route: 065
  11. RADICAVA [Concomitant]
     Active Substance: EDARAVONE
     Route: 065
  12. VYEPTI [Concomitant]
     Active Substance: EPTINEZUMAB-JJMR
     Route: 065
  13. LEQEMBI [Concomitant]
     Active Substance: LECANEMAB-IRMB
     Route: 065

REACTIONS (1)
  - Trigeminal neuralgia [Unknown]
